FAERS Safety Report 19672796 (Version 7)
Quarter: 2022Q1

REPORT INFORMATION
  Report Type: Report from Study
  Country: US (occurrence: US)
  Receive Date: 20210809
  Receipt Date: 20220211
  Transmission Date: 20220423
  Serious: Yes (Hospitalization, Other)
  Sender: FDA-Public Use
  Company Number: NVSC2021US173557

PATIENT
  Age: 19 Year
  Sex: Female

DRUGS (1)
  1. KESIMPTA [Suspect]
     Active Substance: OFATUMUMAB
     Indication: Multiple sclerosis
     Dosage: 20 MG, QMO (SUBCUTANEOUS - BENEATH THE SKIN, USUALLY VIA INJECTION)
     Route: 058
     Dates: start: 20210618

REACTIONS (17)
  - Multiple sclerosis relapse [Recovering/Resolving]
  - Asthenia [Recovering/Resolving]
  - Gait inability [Recovering/Resolving]
  - Musculoskeletal discomfort [Recovering/Resolving]
  - Mobility decreased [Recovering/Resolving]
  - Blindness [Recovering/Resolving]
  - Viral infection [Recovering/Resolving]
  - Influenza like illness [Recovered/Resolved]
  - Pyrexia [Recovered/Resolved]
  - Chills [Recovered/Resolved]
  - Pain [Recovered/Resolved]
  - Asthenia [Recovered/Resolved]
  - Bronchitis [Recovering/Resolving]
  - Immune system disorder [Not Recovered/Not Resolved]
  - Depression [Recovering/Resolving]
  - Illness [Not Recovered/Not Resolved]
  - Sinus congestion [Not Recovered/Not Resolved]

NARRATIVE: CASE EVENT DATE: 20210618
